FAERS Safety Report 25755072 (Version 1)
Quarter: 2025Q3

REPORT INFORMATION
  Report Type: Spontaneous
  Country: US (occurrence: US)
  Receive Date: 20250903
  Receipt Date: 20250903
  Transmission Date: 20251020
  Serious: No
  Sender: SUNOVION
  Company Number: US-SMPA-2025SPA011079

PATIENT
  Age: 78 Year
  Sex: Male

DRUGS (2)
  1. ORGOVYX [Suspect]
     Active Substance: RELUGOLIX
     Indication: Prostate cancer
     Route: 048
  2. FLOMAX [Suspect]
     Active Substance: TAMSULOSIN HYDROCHLORIDE
     Indication: Product used for unknown indication

REACTIONS (1)
  - Hepatic enzyme increased [Unknown]

NARRATIVE: CASE EVENT DATE: 20250101
